FAERS Safety Report 22058216 (Version 1)
Quarter: 2023Q1

REPORT INFORMATION
  Report Type: Report from Study
  Country: CA (occurrence: CA)
  Receive Date: 20230303
  Receipt Date: 20230303
  Transmission Date: 20230417
  Serious: Yes (Hospitalization, Other)
  Sender: FDA-Public Use
  Company Number: CA-JNJFOC-20200123078

PATIENT
  Age: 50 Year
  Sex: Female

DRUGS (2)
  1. TREMFYA [Suspect]
     Active Substance: GUSELKUMAB
     Indication: Psoriasis
     Dosage: LAST DOSE: 19-NOV-2019
     Route: 058
     Dates: start: 20190827, end: 20201104
  2. TREMFYA [Suspect]
     Active Substance: GUSELKUMAB
     Dosage: ALSO REPORTED AS 16-JUL-2020
     Route: 058
     Dates: start: 20200619

REACTIONS (3)
  - Autoimmune hepatitis [Not Recovered/Not Resolved]
  - Psoriasis [Recovered/Resolved]
  - Exostosis [Recovering/Resolving]

NARRATIVE: CASE EVENT DATE: 20200101
